FAERS Safety Report 10508789 (Version 8)
Quarter: 2017Q1

REPORT INFORMATION
  Report Type: Report from Study
  Country: JP (occurrence: JP)
  Receive Date: 20141009
  Receipt Date: 20170308
  Transmission Date: 20170428
  Serious: Yes (Other)
  Sender: FDA-Public Use
  Company Number: JP-ASTELLAS-2011JP004770

PATIENT
  Age: 47 Year
  Sex: Male

DRUGS (50)
  1. PREDONINE [Suspect]
     Active Substance: PREDNISOLONE
     Route: 048
     Dates: start: 20090702, end: 20100210
  2. PREDONINE [Suspect]
     Active Substance: PREDNISOLONE
     Route: 048
     Dates: start: 20130613, end: 20131002
  3. BLOPRESS [Concomitant]
     Active Substance: CANDESARTAN CILEXETIL
     Indication: PRODUCT USED FOR UNKNOWN INDICATION
     Dosage: UNK UNK, UNKNOWN FREQ.
     Route: 048
     Dates: end: 20090617
  4. MOHRUS [Concomitant]
     Active Substance: KETOPROFEN
     Indication: SYSTEMIC LUPUS ERYTHEMATOSUS
     Dosage: 2-3 SHEETS PER DAY
     Route: 061
     Dates: start: 20110810, end: 20140604
  5. FEBURIC [Concomitant]
     Active Substance: FEBUXOSTAT
     Indication: LUPUS NEPHRITIS
     Route: 048
     Dates: start: 20120426, end: 20121107
  6. PRECIPITATED CALCIUM CARBONATE [Concomitant]
     Active Substance: CALCIUM CARBONATE
     Indication: PROPHYLAXIS
     Route: 048
     Dates: start: 20121011, end: 20131030
  7. PREDONINE [Suspect]
     Active Substance: PREDNISOLONE
     Indication: LUPUS NEPHRITIS
     Route: 048
     Dates: end: 20090303
  8. PREDONINE [Suspect]
     Active Substance: PREDNISOLONE
     Route: 048
     Dates: start: 20090304, end: 20090317
  9. PREDONINE [Suspect]
     Active Substance: PREDNISOLONE
     Route: 048
     Dates: start: 20100805, end: 20110209
  10. PREDONINE [Suspect]
     Active Substance: PREDNISOLONE
     Route: 048
     Dates: start: 20111013, end: 20120523
  11. CALCIUM LACTATE [Concomitant]
     Active Substance: CALCIUM LACTATE
     Route: 048
     Dates: end: 20121010
  12. PRECIPITATED CALCIUM CARBONATE [Concomitant]
     Active Substance: CALCIUM CARBONATE
     Route: 048
     Dates: start: 20131031
  13. KETOPROFEN. [Concomitant]
     Active Substance: KETOPROFEN
     Indication: SYSTEMIC LUPUS ERYTHEMATOSUS
     Dosage: 2-3 SHEETS/DAY
     Dates: start: 20140605
  14. RABEPRAZOLE SODIUM. [Concomitant]
     Active Substance: RABEPRAZOLE SODIUM
     Indication: GASTRIC ULCER HELICOBACTER
     Route: 048
     Dates: start: 20141203
  15. SAWACILLIN [Concomitant]
     Active Substance: AMOXICILLIN
     Indication: HELICOBACTER INFECTION
     Route: 048
     Dates: start: 20150208, end: 20150215
  16. TACROLIMUS. [Suspect]
     Active Substance: TACROLIMUS
     Route: 048
     Dates: start: 20090421, end: 20130123
  17. PREDONINE [Suspect]
     Active Substance: PREDNISOLONE
     Route: 048
     Dates: start: 20090401, end: 20090602
  18. PREDONINE [Suspect]
     Active Substance: PREDNISOLONE
     Route: 048
     Dates: start: 20131003, end: 20140703
  19. AMOBAN [Concomitant]
     Active Substance: ZOPICLONE
     Indication: PRODUCT USED FOR UNKNOWN INDICATION
     Route: 048
     Dates: start: 20090512, end: 20140827
  20. BACTRAMIN [Concomitant]
     Active Substance: SULFAMETHOXAZOLE\TRIMETHOPRIM
     Indication: PROPHYLAXIS
     Route: 048
     Dates: end: 20110209
  21. ZYLORIC [Concomitant]
     Active Substance: ALLOPURINOL
     Indication: LUPUS NEPHRITIS
     Route: 048
     Dates: start: 20111115, end: 20120425
  22. TACROLIMUS. [Suspect]
     Active Substance: TACROLIMUS
     Route: 048
     Dates: start: 20090331, end: 20090420
  23. TACROLIMUS. [Suspect]
     Active Substance: TACROLIMUS
     Route: 048
     Dates: start: 20130124
  24. PREDONINE [Suspect]
     Active Substance: PREDNISOLONE
     Route: 048
     Dates: start: 20120524, end: 20120718
  25. PREDONINE [Suspect]
     Active Substance: PREDNISOLONE
     Route: 048
     Dates: start: 20141218, end: 20150930
  26. PREDONINE [Suspect]
     Active Substance: PREDNISOLONE
     Route: 048
     Dates: start: 20151001
  27. ALFAROL [Concomitant]
     Active Substance: ALFACALCIDOL
     Indication: OSTEOPOROSIS PROPHYLAXIS
     Dosage: 0.5 ?G, ONCE DAILY
     Route: 048
     Dates: start: 20120719
  28. LIVALO [Concomitant]
     Active Substance: PITAVASTATIN CALCIUM
     Indication: PRODUCT USED FOR UNKNOWN INDICATION
     Route: 048
     Dates: start: 20090729, end: 20140604
  29. CALCIUM LACTATE [Concomitant]
     Active Substance: CALCIUM LACTATE
     Indication: PROPHYLAXIS
     Route: 048
     Dates: start: 20110112
  30. RECALBON [Concomitant]
     Active Substance: MINODRONIC ACID
     Indication: OSTEOPOROSIS PROPHYLAXIS
     Route: 048
     Dates: start: 20120719
  31. PREDONINE [Suspect]
     Active Substance: PREDNISOLONE
     Route: 048
     Dates: start: 20090318, end: 20090331
  32. PREDONINE [Suspect]
     Active Substance: PREDNISOLONE
     Route: 048
     Dates: start: 20110210, end: 20110629
  33. EPADEL-S [Concomitant]
     Active Substance: ICOSAPENT ETHYL
     Indication: PRODUCT USED FOR UNKNOWN INDICATION
     Route: 048
     Dates: start: 20090701, end: 20120719
  34. PREDONINE [Suspect]
     Active Substance: PREDNISOLONE
     Route: 048
     Dates: start: 20100513, end: 20100804
  35. BONALON [Concomitant]
     Active Substance: ALENDRONATE SODIUM
     Indication: PROPHYLAXIS
     Route: 048
     Dates: end: 20120718
  36. LENDORMIN [Concomitant]
     Active Substance: BROTIZOLAM
     Indication: PRODUCT USED FOR UNKNOWN INDICATION
     Dosage: 0.25 MG, ONCE DAILY
     Route: 048
     Dates: start: 20090331
  37. FLAGYL [Concomitant]
     Active Substance: METRONIDAZOLE\METRONIDAZOLE HYDROCHLORIDE
     Indication: HELICOBACTER INFECTION
     Route: 048
     Dates: start: 20150208, end: 20150215
  38. TACROLIMUS. [Suspect]
     Active Substance: TACROLIMUS
     Indication: LUPUS NEPHRITIS
     Route: 048
     Dates: start: 20090317, end: 20090330
  39. PERSANTINE [Concomitant]
     Active Substance: DIPYRIDAMOLE
     Indication: LUPUS NEPHRITIS
     Route: 048
  40. FEBURIC [Concomitant]
     Active Substance: FEBUXOSTAT
     Route: 048
     Dates: start: 20121108
  41. PREDONINE [Suspect]
     Active Substance: PREDNISOLONE
     Route: 048
     Dates: start: 20090603, end: 20090701
  42. PREDONINE [Suspect]
     Active Substance: PREDNISOLONE
     Route: 048
     Dates: start: 20100211, end: 20100512
  43. PREDONINE [Suspect]
     Active Substance: PREDNISOLONE
     Route: 048
     Dates: start: 20110630, end: 20111012
  44. PREDONINE [Suspect]
     Active Substance: PREDNISOLONE
     Route: 048
     Dates: start: 20120719, end: 20130612
  45. PREDONINE [Suspect]
     Active Substance: PREDNISOLONE
     Route: 048
     Dates: start: 20140827, end: 20141217
  46. MUCOSTA [Concomitant]
     Active Substance: REBAMIPIDE
     Indication: PROPHYLAXIS
     Route: 048
  47. ALFAROL [Concomitant]
     Active Substance: ALFACALCIDOL
     Indication: PROPHYLAXIS
     Dosage: 0.25 ?G, ONCE DAILY
     Route: 048
     Dates: end: 20120718
  48. RECALBON [Concomitant]
     Active Substance: MINODRONIC ACID
     Indication: PROPHYLAXIS
     Route: 048
     Dates: end: 20131002
  49. LUNESTA [Concomitant]
     Active Substance: ESZOPICLONE
     Indication: PRODUCT USED FOR UNKNOWN INDICATION
     Route: 048
     Dates: start: 20140828
  50. RABEPRAZOLE SODIUM. [Concomitant]
     Active Substance: RABEPRAZOLE SODIUM
     Indication: PROPHYLAXIS

REACTIONS (4)
  - Gastric ulcer helicobacter [Recovering/Resolving]
  - Blood creatinine increased [Recovered/Resolved]
  - Osteonecrosis [Not Recovered/Not Resolved]
  - Hypertension [Recovering/Resolving]

NARRATIVE: CASE EVENT DATE: 2011
